FAERS Safety Report 14943828 (Version 1)
Quarter: 2018Q2

REPORT INFORMATION
  Report Type: Spontaneous
  Country: US (occurrence: US)
  Receive Date: 20180528
  Receipt Date: 20180528
  Transmission Date: 20180711
  Serious: No
  Sender: FDA-Public Use
  Company Number: US-B.I. PHARMACEUTICALS,INC./RIDGEFIELD-2017-BI-052141

PATIENT
  Age: 65 Year
  Sex: Female

DRUGS (5)
  1. MIRAPEX ER [Suspect]
     Active Substance: PRAMIPEXOLE DIHYDROCHLORIDE
     Dosage: REPORTED ON: 03-MAY-2018
     Route: 048
  2. MIRAPEX ER [Suspect]
     Active Substance: PRAMIPEXOLE DIHYDROCHLORIDE
     Dosage: ADMINISTRATION CORRECT? YES ?ACTION(S) TAKEN WITH PRODUCT: DOSE NOT CHANGED
     Route: 048
     Dates: start: 201708
  3. TRAMADOL. [Concomitant]
     Active Substance: TRAMADOL
     Indication: PAIN
     Dosage: THREE TIMES DAILY;  FORM STRENGTH: 50MG; FORMULATION: TABLET
     Route: 048
     Dates: end: 201708
  4. GABAPENTIN. [Concomitant]
     Active Substance: GABAPENTIN
     Indication: PAIN
     Dosage: THREE TIMES DAILY;  FORM STRENGTH: 100MG; FORMULATION: TABLET
     Route: 048
     Dates: start: 201708
  5. MIRAPEX ER [Suspect]
     Active Substance: PRAMIPEXOLE DIHYDROCHLORIDE
     Indication: PARKINSON^S DISEASE
     Dosage: ADMINISTRATION CORRECT? YES ?ACTION(S) TAKEN WITH PRODUCT: DRUG REDUCED
     Route: 048
     Dates: start: 201609, end: 201708

REACTIONS (5)
  - Visual acuity reduced [Not Recovered/Not Resolved]
  - Muscle spasms [Recovered/Resolved]
  - Disease progression [Not Recovered/Not Resolved]
  - Muscle spasms [Unknown]
  - Vision blurred [Not Recovered/Not Resolved]

NARRATIVE: CASE EVENT DATE: 201609
